FAERS Safety Report 8625305-X (Version None)
Quarter: 2012Q3

REPORT INFORMATION
  Report Type: 
  Country: None (occurrence: None)
  Receive Date: 20120827
  Receipt Date: 20120817
  Transmission Date: 20120928
  Serious: Yes (Hospitalization)
  Sender: FDA-Public Use
  Company Number: US-ASTRAZENECA-2012SE60093

PATIENT
  Age: 45 Year
  Sex: Female
  Weight: 74.8 kg

DRUGS (4)
  1. NEXIUM [Suspect]
     Indication: GASTROOESOPHAGEAL REFLUX DISEASE
     Route: 048
     Dates: start: 20090101
  2. NASAL SPRAY [Concomitant]
     Indication: MULTIPLE ALLERGIES
  3. ALLERGY PILL [Concomitant]
     Indication: MULTIPLE ALLERGIES
  4. OTHER MEDICATIONS [Concomitant]

REACTIONS (5)
  - OESOPHAGEAL DISORDER [None]
  - GASTROOESOPHAGEAL SPHINCTER INSUFFICIENCY [None]
  - GASTROOESOPHAGEAL REFLUX DISEASE [None]
  - MALAISE [None]
  - DRUG DOSE OMISSION [None]
